FAERS Safety Report 15345829 (Version 1)
Quarter: 2018Q3

REPORT INFORMATION
  Report Type: Spontaneous
  Country: FR (occurrence: FR)
  Receive Date: 20180904
  Receipt Date: 20180904
  Transmission Date: 20181010
  Serious: Yes (Other)
  Sender: FDA-Public Use
  Company Number: FR-ROCHE-2178285

PATIENT
  Age: 50 Year
  Sex: Female

DRUGS (2)
  1. XOLAIR [Suspect]
     Active Substance: OMALIZUMAB
     Indication: URTICARIA
     Dosage: 150 MG, UNK (2X150M EVERY 4 WEEKS)
     Route: 058
     Dates: start: 2016
  2. INORIAL [Concomitant]
     Active Substance: BILASTINE
     Indication: URTICARIA
     Dosage: 40 MG, QD (2QD EVENING)
     Route: 048
     Dates: start: 2017

REACTIONS (6)
  - Cataract [Recovered/Resolved]
  - Weight decreased [Not Recovered/Not Resolved]
  - Micturition urgency [Not Recovered/Not Resolved]
  - Hyperglycaemia [Not Recovered/Not Resolved]
  - Blood cholesterol increased [Not Recovered/Not Resolved]
  - Thirst [Not Recovered/Not Resolved]

NARRATIVE: CASE EVENT DATE: 2016
